FAERS Safety Report 5753003-9 (Version None)
Quarter: 2008Q2

REPORT INFORMATION
  Report Type: 
  Country: None (occurrence: None)
  Receive Date: 20080527
  Receipt Date: 20080516
  Transmission Date: 20081010
  Serious: Yes (Death)
  Sender: FDA-Public Use
  Company Number: MSTR-NO-0805S-0023

PATIENT
  Age: 36 Year
  Sex: Male

DRUGS (1)
  1. METASTRON [Suspect]
     Dosage: 141 MBQ, SINGLE DOSE, I.V.
     Route: 042
     Dates: start: 20080430, end: 20080430

REACTIONS (1)
  - MALIGNANT PLEURAL EFFUSION [None]
